FAERS Safety Report 9507837 (Version 1)
Quarter: 2013Q3

REPORT INFORMATION
  Report Type: Spontaneous
  Country: US (occurrence: US)
  Receive Date: 20130909
  Receipt Date: 20130909
  Transmission Date: 20140515
  Serious: Yes (Death)
  Sender: FDA-Public Use
  Company Number: US-PFIZER INC-2013255714

PATIENT
  Age: 57 Year
  Sex: Female

DRUGS (9)
  1. INLYTA [Suspect]
     Indication: RENAL CANCER
     Dosage: 1 MG, 3 TABLETS 2X/DAY (TWICE DAILY)
     Route: 048
     Dates: start: 20130228
  2. CALTRATE [Concomitant]
     Dosage: UNK
  3. COMBIGAN [Concomitant]
     Dosage: UNK
  4. DILTIAZEM [Concomitant]
     Dosage: UNK
  5. LATANOPROST [Concomitant]
     Dosage: UNK
  6. ONDANSETRON [Concomitant]
     Dosage: UNK
  7. OXYCODONE [Concomitant]
     Dosage: UNK
  8. OXYCONTIN [Concomitant]
     Dosage: UNK
  9. PRILOSEC [Concomitant]
     Dosage: UNK

REACTIONS (1)
  - Death [Fatal]
